FAERS Safety Report 8490580-1 (Version None)
Quarter: 2012Q3

REPORT INFORMATION
  Report Type: 
  Country: None (occurrence: None)
  Receive Date: 20120705
  Receipt Date: 20120627
  Transmission Date: 20120928
  Serious: Yes (Other)
  Sender: FDA-Public Use
  Company Number: BR-ABBOTT-12P-020-0951080-00

PATIENT
  Sex: Female
  Weight: 57.5 kg

DRUGS (5)
  1. ESTRADIOL [Concomitant]
     Indication: HORMONE REPLACEMENT THERAPY
     Dosage: GEL ON EACH LEG AND ON ABDOMEN
     Route: 062
  2. ESTRADIOL [Concomitant]
     Indication: MENOPAUSE
  3. LEVOTHYROXINE SODIUM [Suspect]
     Indication: HYPOTHYROIDISM
     Dosage: FASTING
     Route: 048
  4. SYNTHROID [Suspect]
     Indication: HYPOTHYROIDISM
     Dosage: FASTING
     Route: 048
  5. SYNTHROID [Suspect]

REACTIONS (22)
  - BONE EROSION [None]
  - DIZZINESS [None]
  - MUSCULOSKELETAL PAIN [None]
  - MENOPAUSE [None]
  - INSOMNIA [None]
  - JOINT SWELLING [None]
  - OSTEOARTHRITIS [None]
  - MUSCULAR WEAKNESS [None]
  - ABASIA [None]
  - ARTHRALGIA [None]
  - HEADACHE [None]
  - BONE PAIN [None]
  - PAIN [None]
  - MENISCUS CYST [None]
  - GAIT DISTURBANCE [None]
  - JOINT RANGE OF MOTION DECREASED [None]
  - ARTHROPATHY [None]
  - EXPIRED DRUG ADMINISTERED [None]
  - JOINT EFFUSION [None]
  - MALAISE [None]
  - PAIN IN EXTREMITY [None]
  - SINUSITIS [None]
